FAERS Safety Report 21367116 (Version 1)
Quarter: 2022Q3

REPORT INFORMATION
  Report Type: Spontaneous
  Country: US (occurrence: US)
  Receive Date: 20220923
  Receipt Date: 20220923
  Transmission Date: 20221027
  Serious: No
  Sender: FDA-Public Use
  Company Number: US-SA-SAC20220915001024

PATIENT
  Age: 6 Month
  Sex: Male
  Weight: 79.365 kg

DRUGS (9)
  1. DUPIXENT [Suspect]
     Active Substance: DUPILUMAB
     Indication: Asthma
     Dosage: 300 MG, QOW
     Route: 058
     Dates: start: 202208
  2. ALBUTEROL [Concomitant]
     Active Substance: ALBUTEROL
  3. BREO ELLIPTA [Concomitant]
     Active Substance: FLUTICASONE FUROATE\VILANTEROL TRIFENATATE
  4. EPIPEN [Concomitant]
     Active Substance: EPINEPHRINE
  5. LAMOTRIGINE [Concomitant]
     Active Substance: LAMOTRIGINE
  6. MELOXICAM [Concomitant]
     Active Substance: MELOXICAM
  7. MIRTAZAPINE [Concomitant]
     Active Substance: MIRTAZAPINE
  8. OMEPRAZOLE [Concomitant]
     Active Substance: OMEPRAZOLE
  9. PAROXETINE [Concomitant]
     Active Substance: PAROXETINE

REACTIONS (4)
  - Injection site pain [Unknown]
  - Injection site erythema [Unknown]
  - Injection site irritation [Unknown]
  - Contusion [Unknown]

NARRATIVE: CASE EVENT DATE: 20220901
